FAERS Safety Report 9683381 (Version 2)
Quarter: 2013Q4

REPORT INFORMATION
  Report Type: Spontaneous
  Country: US (occurrence: US)
  Receive Date: 20131112
  Receipt Date: 20131120
  Transmission Date: 20140711
  Serious: No
  Sender: FDA-Public Use
  Company Number: US-PFIZER INC-2013320812

PATIENT
  Sex: Female

DRUGS (1)
  1. NITROSTAT [Suspect]
     Indication: DYSPNOEA
     Dosage: 0.3 MG, 1X/DAY
     Route: 060
     Dates: start: 20131107

REACTIONS (2)
  - Off label use [Unknown]
  - Burning sensation [Unknown]
